FAERS Safety Report 4280643-9 (Version None)
Quarter: 2004Q1

REPORT INFORMATION
  Report Type: 
  Country: None (occurrence: None)
  Receive Date: 20040127
  Receipt Date: 20031202
  Transmission Date: 20041129
  Serious: Yes (Hospitalization)
  Sender: FDA-Public Use
  Company Number: 2003-DE-06177GD

PATIENT
  Age: 40 Year
  Sex: Female

DRUGS (1)
  1. NEVIRAPINE (NEVIRAPINE) [Suspect]
     Indication: HIV INFECTION

REACTIONS (2)
  - HEPATIC FAILURE [None]
  - LIVER TRANSPLANT [None]
